FAERS Safety Report 16347674 (Version 1)
Quarter: 2019Q2

REPORT INFORMATION
  Report Type: Spontaneous
  Country: NL (occurrence: NL)
  Receive Date: 20190523
  Receipt Date: 20190523
  Transmission Date: 20190711
  Serious: Yes (Hospitalization)
  Sender: FDA-Public Use
  Company Number: NL-TEVA-2019-NL-1052977

PATIENT
  Age: 2 Year
  Sex: Male

DRUGS (1)
  1. CARBASALATE CALCIUM [Suspect]
     Active Substance: CARBASPIRIN
     Indication: THROMBOSIS PROPHYLAXIS
     Dosage: 19 MILLIGRAM DAILY;
     Route: 065

REACTIONS (3)
  - Vomiting [Unknown]
  - Subdural haematoma [Unknown]
  - Brain midline shift [Unknown]
